FAERS Safety Report 9441283 (Version 2)
Quarter: 2013Q4

REPORT INFORMATION
  Report Type: Spontaneous
  Country: SE (occurrence: SE)
  Receive Date: 20130805
  Receipt Date: 20131001
  Transmission Date: 20140711
  Serious: Yes (Other)
  Sender: FDA-Public Use
  Company Number: SE-PFIZER INC-2013221698

PATIENT
  Age: 21 Year
  Sex: Female

DRUGS (4)
  1. SALAZOPYRIN [Suspect]
     Dosage: 2 G, DAILY
     Route: 048
     Dates: start: 20100325, end: 20100420
  2. PREDNISOLON [Suspect]
     Dosage: 10 MG, DAILY
     Route: 048
     Dates: start: 20061208, end: 20061226
  3. HUMIRA [Suspect]
     Dosage: 40 MG, SINGLE
     Dates: start: 20111117, end: 20111117
  4. ERY-MAX [Suspect]
     Indication: ACUTE TONSILLITIS
     Dosage: 2 G, DAILY
     Dates: start: 201005

REACTIONS (8)
  - Psoriasis [Not Recovered/Not Resolved]
  - Condition aggravated [Not Recovered/Not Resolved]
  - Nausea [Unknown]
  - Headache [Unknown]
  - Pyrexia [Not Recovered/Not Resolved]
  - Exfoliative rash [Not Recovered/Not Resolved]
  - Drug ineffective [Unknown]
  - Rash [Not Recovered/Not Resolved]
